FAERS Safety Report 6507166-8 (Version None)
Quarter: 2009Q4

REPORT INFORMATION
  Report Type: 
  Country: None (occurrence: None)
  Receive Date: 20091221
  Receipt Date: 20091210
  Transmission Date: 20100525
  Serious: Yes (Disabling)
  Sender: FDA-Public Use
  Company Number: PHHY2009JP50157

PATIENT
  Sex: Male
  Weight: 60 kg

DRUGS (4)
  1. ZOMETA [Suspect]
     Indication: METASTASES TO BONE
     Dosage: 4MG PER ADMINISTRATION
     Route: 041
     Dates: start: 20081009, end: 20091105
  2. DECADRON [Concomitant]
     Dosage: 1 MG, UNK
     Route: 048
  3. LEUPLIN [Concomitant]
     Indication: PROSTATE CANCER
     Dosage: 11.25 MG, UNK
     Route: 058
     Dates: start: 20060403
  4. TAXOTERE [Concomitant]
     Dosage: UNK
     Dates: start: 20090928

REACTIONS (4)
  - BONE DISORDER [None]
  - BONE NEOPLASM [None]
  - OSTEONECROSIS [None]
  - PROSTATIC SPECIFIC ANTIGEN INCREASED [None]
